FAERS Safety Report 20963354 (Version 1)
Quarter: 2022Q2

REPORT INFORMATION
  Report Type: Spontaneous
  Country: US (occurrence: US)
  Receive Date: 20220615
  Receipt Date: 20220615
  Transmission Date: 20220721
  Serious: No
  Sender: FDA-Public Use
  Company Number: US-PERRIGO-21US011144

PATIENT
  Sex: Female

DRUGS (1)
  1. MICONAZOLE NITRATE [Suspect]
     Active Substance: MICONAZOLE NITRATE
     Indication: Product used for unknown indication
     Dosage: 100 MG, UNK
     Route: 067
     Dates: start: 202108

REACTIONS (1)
  - Vulvovaginal pain [Unknown]

NARRATIVE: CASE EVENT DATE: 20210801
